FAERS Safety Report 7212479-0 (Version None)
Quarter: 2011Q1

REPORT INFORMATION
  Report Type: 
  Country: None (occurrence: None)
  Receive Date: 20110106
  Receipt Date: 20110103
  Transmission Date: 20110831
  Serious: Yes (Life-Threatening)
  Sender: FDA-Public Use
  Company Number: FR-ASTRAZENECA-2011SE00340

PATIENT
  Age: 21570 Day
  Sex: Female

DRUGS (9)
  1. SEROPLEX [Concomitant]
  2. KENZEN [Concomitant]
  3. DIPRIVAN [Suspect]
     Route: 042
     Dates: start: 20101202, end: 20101202
  4. NORMEGESTROL [Concomitant]
  5. SUCCINYLCHOLINE CHLORIDE [Suspect]
     Route: 042
     Dates: start: 20101202, end: 20101202
  6. ZOPICLONE [Concomitant]
  7. LANSOPRAZOLE [Concomitant]
  8. OESTRODOSE [Concomitant]
  9. SUFENTA PRESERVATIVE FREE [Suspect]
     Route: 042
     Dates: start: 20101202, end: 20101202

REACTIONS (1)
  - ANAPHYLACTIC SHOCK [None]
